FAERS Safety Report 14334883 (Version 3)
Quarter: 2019Q2

REPORT INFORMATION
  Report Type: Spontaneous
  Country: JP (occurrence: JP)
  Receive Date: 20171229
  Receipt Date: 20190410
  Transmission Date: 20190711
  Serious: No
  Sender: FDA-Public Use
  Company Number: JP-AMGEN-JPNSP2017191914

PATIENT
  Age: 61 Year
  Sex: Male

DRUGS (10)
  1. FLUOROURACIL. [Suspect]
     Active Substance: FLUOROURACIL
     Indication: COLON CANCER
     Dosage: 400 MILLIGRAM/SQ. METER
     Route: 040
     Dates: start: 201406
  2. VECTIBIX [Suspect]
     Active Substance: PANITUMUMAB
     Indication: METASTASES TO LIVER
     Dosage: UNK
     Route: 041
     Dates: start: 201504
  3. FLUOROURACIL. [Suspect]
     Active Substance: FLUOROURACIL
     Indication: METASTASES TO LIVER
     Dosage: 2400 MILLIGRAM/SQ. METER
     Route: 041
  4. CALCIUM LEVOFOLINATE [Suspect]
     Active Substance: LEVOLEUCOVORIN CALCIUM
     Indication: METASTASES TO LIVER
     Dosage: 200 MILLIGRAM/SQ. METER
     Route: 041
     Dates: start: 201406
  5. VECTIBIX [Suspect]
     Active Substance: PANITUMUMAB
     Indication: COLON CANCER
     Dosage: 6 MILLIGRAM/KILOGRAM, Q2WK
     Route: 041
     Dates: start: 201406
  6. FLUOROURACIL. [Suspect]
     Active Substance: FLUOROURACIL
     Dosage: UNK
     Route: 040
     Dates: start: 201504
  7. OXALIPLATIN. [Suspect]
     Active Substance: OXALIPLATIN
     Indication: COLON CANCER
     Dosage: 85 MILLIGRAM/SQ. METER
     Route: 041
     Dates: start: 201406
  8. CALCIUM LEVOFOLINATE [Suspect]
     Active Substance: LEVOLEUCOVORIN CALCIUM
     Indication: COLON CANCER
     Dosage: UNK
     Route: 041
     Dates: start: 201504
  9. FLUOROURACIL. [Suspect]
     Active Substance: FLUOROURACIL
     Dosage: UNK
     Route: 041
  10. OXALIPLATIN. [Suspect]
     Active Substance: OXALIPLATIN
     Indication: METASTASES TO LIVER
     Dosage: UNK
     Route: 041
     Dates: start: 201504

REACTIONS (1)
  - Platelet count decreased [Unknown]
